FAERS Safety Report 8002701-5 (Version None)
Quarter: 2011Q4

REPORT INFORMATION
  Report Type: 
  Country: None (occurrence: None)
  Receive Date: 20111222
  Receipt Date: 20111213
  Transmission Date: 20120403
  Serious: Yes (Hospitalization, Disabling, Other)
  Sender: FDA-Public Use
  Company Number: US-MERCK-1103USA01907

PATIENT
  Age: 61 Year
  Sex: Female
  Weight: 62 kg

DRUGS (17)
  1. PROPRANOLOL HYDROCHLORIDE [Concomitant]
     Indication: MIGRAINE PROPHYLAXIS
     Route: 048
     Dates: start: 19830101
  2. DETROL [Concomitant]
     Indication: MICTURITION URGENCY
     Route: 065
     Dates: start: 19900101
  3. CALCIUM CARBONATE [Concomitant]
     Route: 065
     Dates: start: 19940801
  4. SUMATRIPTAN SUCCINATE (IMITREX) [Concomitant]
     Indication: MIGRAINE
     Route: 051
  5. VITAMINS (UNSPECIFIED) [Concomitant]
     Route: 065
  6. FOSAMAX [Suspect]
     Route: 048
     Dates: start: 20020101
  7. ALENDRONATE SODIUM [Suspect]
     Indication: OSTEOPOROSIS
     Route: 048
     Dates: start: 20070801, end: 20090701
  8. VITAMIN D (UNSPECIFIED) [Concomitant]
     Route: 065
  9. FIORINAL [Concomitant]
     Indication: MIGRAINE
     Route: 065
  10. INDERAL [Concomitant]
     Indication: MIGRAINE
     Route: 065
  11. FOSAMAX [Suspect]
     Indication: OSTEOPOROSIS
     Route: 048
     Dates: start: 19970101, end: 20020101
  12. CALCIUM (UNSPECIFIED) [Concomitant]
     Route: 065
  13. ESTRING [Concomitant]
     Indication: ATROPHIC VULVOVAGINITIS
     Route: 065
  14. ALENDRONATE SODIUM [Suspect]
     Indication: OSTEOPOROSIS PROPHYLAXIS
     Route: 048
     Dates: start: 20070801, end: 20090701
  15. DEPAKOTE [Concomitant]
     Indication: MIGRAINE
     Route: 065
  16. SANSERT [Concomitant]
     Indication: MIGRAINE
     Route: 065
  17. SUMATRIPTAN [Concomitant]
     Route: 048

REACTIONS (23)
  - FEMUR FRACTURE [None]
  - OSTEOPOROSIS [None]
  - STRESS FRACTURE [None]
  - ARRHYTHMIA [None]
  - SINUSITIS [None]
  - ARTHRALGIA [None]
  - LUNG NEOPLASM [None]
  - DIZZINESS [None]
  - FRACTURE NONUNION [None]
  - FOOT FRACTURE [None]
  - PULMONARY GRANULOMA [None]
  - DRY MOUTH [None]
  - FALL [None]
  - VAGINAL INFECTION [None]
  - OSTEOPENIA [None]
  - MUSCLE ATROPHY [None]
  - DETRUSOR SPHINCTER DYSSYNERGIA [None]
  - SPINAL COMPRESSION FRACTURE [None]
  - OSTEOARTHRITIS [None]
  - SCOLIOSIS [None]
  - LOW TURNOVER OSTEOPATHY [None]
  - CONJUNCTIVITIS [None]
  - ASTHENIA [None]
